FAERS Safety Report 14509503 (Version 1)
Quarter: 2018Q1

REPORT INFORMATION
  Report Type: Spontaneous
  Country: MX (occurrence: MX)
  Receive Date: 20180209
  Receipt Date: 20180209
  Transmission Date: 20180509
  Serious: Yes (Hospitalization)
  Sender: FDA-Public Use
  Company Number: MX-ASTELLAS-2018US006606

PATIENT
  Age: 53 Year
  Sex: Female

DRUGS (5)
  1. BORTEZOMIB [Suspect]
     Active Substance: BORTEZOMIB
     Indication: TRANSPLANT REJECTION
     Dosage: 1.72 MG, UNKNOWN FREQ. ((1.3 MG/M2 BODY SURFACE AREA) ON DAYS 1, 4, 7, AND 10)
     Route: 065
  2. PREDNISONE. [Concomitant]
     Active Substance: PREDNISONE
     Indication: RENAL TRANSPLANT
     Route: 065
  3. TACROLIMUS. [Suspect]
     Active Substance: TACROLIMUS
     Indication: RENAL TRANSPLANT
     Route: 065
  4. TACROLIMUS. [Suspect]
     Active Substance: TACROLIMUS
     Route: 065
  5. AZATHIOPRINE. [Concomitant]
     Active Substance: AZATHIOPRINE
     Indication: RENAL TRANSPLANT
     Route: 065

REACTIONS (12)
  - Toxicity to various agents [Unknown]
  - Diarrhoea [Recovered/Resolved]
  - Capillary leak syndrome [Unknown]
  - Complications of transplanted kidney [Unknown]
  - Neuropathy peripheral [Not Recovered/Not Resolved]
  - Transplant rejection [Unknown]
  - Blood creatinine increased [Unknown]
  - Chronic allograft nephropathy [Unknown]
  - Immunosuppressant drug level increased [Recovered/Resolved]
  - Hyponatraemia [Unknown]
  - Oliguria [Recovered/Resolved]
  - Pancytopenia [Unknown]
